FAERS Safety Report 7657022 (Version 2)
Quarter: 2019Q1

REPORT INFORMATION
  Report Type: Spontaneous
  Country: GB (occurrence: GB)
  Receive Date: 20101104
  Receipt Date: 20190214
  Transmission Date: 20190418
  Serious: Yes (Disabling, Other)
  Sender: FDA-Public Use
  Company Number: GB-PFIZER INC-2010138504

PATIENT
  Age: 39 Year
  Sex: Female
  Weight: 63.5 kg

DRUGS (3)
  1. SALBUTAMOL [Concomitant]
     Active Substance: ALBUTEROL
     Indication: ASTHMA
     Dosage: 2 DF, UNK
     Route: 055
     Dates: start: 20070131
  2. SYMBICORT [Concomitant]
     Active Substance: BUDESONIDE\FORMOTEROL FUMARATE DIHYDRATE
     Indication: ASTHMA
     Dosage: 2 DF, 2X/DAY
     Route: 055
     Dates: start: 20000919
  3. CHAMPIX [Suspect]
     Active Substance: VARENICLINE TARTRATE
     Indication: SMOKING CESSATION THERAPY
     Dosage: 1 MG, UNK
     Route: 048
     Dates: start: 20101006, end: 20101012

REACTIONS (2)
  - Asthma [Recovering/Resolving]
  - Bronchospasm [Recovering/Resolving]

NARRATIVE: CASE EVENT DATE: 20101007
